FAERS Safety Report 4459816-8 (Version None)
Quarter: 2004Q3

REPORT INFORMATION
  Report Type: 
  Country: None (occurrence: None)
  Receive Date: 20040928
  Receipt Date: 20031111
  Transmission Date: 20050211
  Serious: Yes (Other)
  Sender: FDA-Public Use
  Company Number: US-BRISTOL-MYERS SQUIBB COMPANY-12432589

PATIENT
  Age: 51 Year
  Sex: Female
  Weight: 52 kg

DRUGS (1)
  1. TRIMOX [Suspect]
     Indication: DENTAL OPERATION
     Route: 048
     Dates: start: 20021218, end: 20021219

REACTIONS (4)
  - DYSPNOEA [None]
  - HYPERSENSITIVITY [None]
  - SENSORY DISTURBANCE [None]
  - VOMITING [None]
